FAERS Safety Report 9591555 (Version 1)
Quarter: 2013Q4

REPORT INFORMATION
  Report Type: Spontaneous
  Country: US (occurrence: US)
  Receive Date: 20131003
  Receipt Date: 20131003
  Transmission Date: 20140711
  Serious: No
  Sender: FDA-Public Use
  Company Number: US-AMGEN-USASP2012082505

PATIENT
  Sex: Male
  Weight: 138.32 kg

DRUGS (7)
  1. ENBREL [Suspect]
     Indication: PSORIASIS
     Dosage: UNK
  2. DIOVAN [Concomitant]
  3. FOLIC ACID [Concomitant]
     Dosage: UNK
  4. PREVACID [Concomitant]
     Dosage: UNK
  5. STELARA [Concomitant]
     Dosage: UNK
  6. VITAMIN B12                        /00056201/ [Concomitant]
     Dosage: UNK
  7. ZOLOFT [Concomitant]
     Dosage: UNK

REACTIONS (1)
  - Drug ineffective [Unknown]
